FAERS Safety Report 6717645-6 (Version None)
Quarter: 2010Q2

REPORT INFORMATION
  Report Type: 
  Country: None (occurrence: None)
  Receive Date: 20100510
  Receipt Date: 20100317
  Transmission Date: 20101027
  Serious: No
  Sender: FDA-Public Use
  Company Number: A0850657A

PATIENT
  Age: 56 Year
  Sex: Female

DRUGS (2)
  1. ALTABAX [Suspect]
     Indication: STAPHYLOCOCCAL INFECTION
     Dosage: 1APP TWICE PER DAY
     Route: 061
     Dates: start: 20100312, end: 20100313
  2. BACTROBAN [Suspect]
     Dosage: 1APP TWICE PER DAY
     Route: 061
     Dates: start: 20090301

REACTIONS (5)
  - ARTHROPATHY [None]
  - BURNING SENSATION [None]
  - DRUG INEFFECTIVE [None]
  - MUSCLE SPASMS [None]
  - PAIN [None]
